FAERS Safety Report 24560550 (Version 5)
Quarter: 2025Q2

REPORT INFORMATION
  Report Type: Spontaneous
  Country: CN (occurrence: CN)
  Receive Date: 20241029
  Receipt Date: 20250403
  Transmission Date: 20250716
  Serious: Yes (Hospitalization, Other)
  Sender: BOEHRINGER INGELHEIM
  Company Number: CN-BoehringerIngelheim-2024-BI-059551

PATIENT
  Age: 62 Year
  Sex: Female
  Weight: 61 kg

DRUGS (1)
  1. MELOXICAM [Suspect]
     Active Substance: MELOXICAM
     Indication: Dermatomyositis
     Dates: start: 20240628, end: 20240827

REACTIONS (5)
  - Dermatomyositis [Recovered/Resolved]
  - Condition aggravated [Recovered/Resolved]
  - Respiratory failure [Not Recovered/Not Resolved]
  - Pulmonary arterial hypertension [Not Recovered/Not Resolved]
  - Pneumonia [Recovered/Resolved]

NARRATIVE: CASE EVENT DATE: 20240823
